FAERS Safety Report 16967420 (Version 1)
Quarter: 2019Q4

REPORT INFORMATION
  Report Type: Spontaneous
  Country: PL (occurrence: PL)
  Receive Date: 20191028
  Receipt Date: 20191028
  Transmission Date: 20200122
  Serious: Yes (Other)
  Sender: FDA-Public Use
  Company Number: PL-MYLANLABS-2019M1101347

PATIENT
  Age: 7 Year
  Sex: Male

DRUGS (1)
  1. KLACID 250 MG / 5 ML - GRANULAT F?R ORALE SUSPENSION [Suspect]
     Active Substance: CLARITHROMYCIN
     Indication: PRODUCT USED FOR UNKNOWN INDICATION
     Dosage: 5 MILLILITER
     Route: 048

REACTIONS (11)
  - Intrusive thoughts [Unknown]
  - Pallor [Unknown]
  - Seizure [Unknown]
  - Nausea [Unknown]
  - Fear [Unknown]
  - Hyperhidrosis [Unknown]
  - Confusional state [Unknown]
  - Hallucination [Unknown]
  - Panic attack [Unknown]
  - Abnormal dreams [Unknown]
  - Dizziness [Unknown]
